FAERS Safety Report 9365360 (Version 2)
Quarter: 2013Q3

REPORT INFORMATION
  Report Type: Report from Study
  Country: JP (occurrence: JP)
  Receive Date: 20130625
  Receipt Date: 20130701
  Transmission Date: 20140515
  Serious: Yes (Death)
  Sender: FDA-Public Use
  Company Number: JP-PFIZER INC-2013183078

PATIENT
  Age: 87 Year
  Sex: Male

DRUGS (1)
  1. UNASYN-S [Suspect]
     Indication: PNEUMONIA
     Dosage: 3 G, 3X/DAY
     Route: 041
     Dates: start: 20130530, end: 20130601

REACTIONS (1)
  - Marasmus [Fatal]
